FAERS Safety Report 4282102-6 (Version None)
Quarter: 2004Q1

REPORT INFORMATION
  Report Type: 
  Country: None (occurrence: None)
  Receive Date: 20040130
  Receipt Date: 20030609
  Transmission Date: 20041129
  Serious: No
  Sender: FDA-Public Use
  Company Number: US-BRISTOL-MYERS SQUIBB COMPANY-12296216

PATIENT
  Sex: Female

DRUGS (1)
  1. DESYREL [Suspect]
     Indication: SLEEP DISORDER
     Dosage: DISCONTINUED 05 OR 06-JUN-2003.
     Route: 048
     Dates: start: 20030501, end: 20030601

REACTIONS (1)
  - RASH [None]
